FAERS Safety Report 8255438-1 (Version None)
Quarter: 2012Q2

REPORT INFORMATION
  Report Type: 
  Country: None (occurrence: None)
  Receive Date: 20120403
  Receipt Date: 20120323
  Transmission Date: 20120825
  Serious: Yes (Hospitalization)
  Sender: FDA-Public Use
  Company Number: GB-SANOFI-AVENTIS-2011SA030301

PATIENT
  Age: 56 Year
  Sex: Male
  Weight: 73.3 kg

DRUGS (4)
  1. RAMIPRIL [Concomitant]
  2. CABAZITAXEL [Suspect]
     Indication: PROSTATE CANCER
     Route: 042
     Dates: start: 20110510, end: 20110510
  3. PREDNISONE TAB [Suspect]
     Indication: PROSTATE CANCER
     Route: 048
     Dates: start: 20110510
  4. AMLODIPINE [Concomitant]

REACTIONS (2)
  - ABDOMINAL PAIN [None]
  - PRESYNCOPE [None]
